FAERS Safety Report 8994727 (Version 1)
Quarter: 2012Q4

REPORT INFORMATION
  Report Type: Spontaneous
  Country: US (occurrence: None)
  Receive Date: 20121228
  Receipt Date: 20121228
  Transmission Date: 20130627
  Serious: Yes (Hospitalization)
  Sender: FDA-Public Use
  Company Number: None

PATIENT
  Age: 56 Year
  Sex: Female
  Weight: 58.06 kg

DRUGS (2)
  1. XOLAIR [Suspect]
     Indication: CHRONIC IDIOPATHIC URTICARIA
     Dosage: 1.2 cc in each arm every month sq
     Dates: start: 20120523, end: 20120827
  2. XOLAIR [Suspect]
     Indication: ASTHMA
     Dosage: 1.2 cc in each arm every month sq
     Dates: start: 20120523, end: 20120827

REACTIONS (3)
  - Pulmonary embolism [None]
  - Tachycardia [None]
  - Atrial fibrillation [None]
